FAERS Safety Report 7604797-9 (Version None)
Quarter: 2011Q3

REPORT INFORMATION
  Report Type: 
  Country: None (occurrence: None)
  Receive Date: 20110712
  Receipt Date: 20110630
  Transmission Date: 20111222
  Serious: Yes (Hospitalization)
  Sender: FDA-Public Use
  Company Number: JP-CELGENEUS-087-21880-11020007

PATIENT
  Sex: Male

DRUGS (42)
  1. REVLIMID [Suspect]
     Indication: MULTIPLE MYELOMA
     Dosage: 25 MILLIGRAM
     Route: 048
     Dates: start: 20100909, end: 20100914
  2. ZOVIRAX [Concomitant]
     Indication: PROPHYLAXIS
     Dosage: 200 MILLIGRAM
     Route: 048
     Dates: start: 20090701, end: 20101215
  3. AMLODIPINE [Concomitant]
     Dosage: 2.5 MILLIGRAM
     Route: 048
     Dates: start: 20100909, end: 20101215
  4. URIEF [Concomitant]
     Dosage: 8 MILLIGRAM
     Route: 048
     Dates: start: 20100909, end: 20101030
  5. OXINORM [Concomitant]
     Dosage: 2.5 MILLIGRAM
     Route: 048
     Dates: start: 20100920, end: 20101013
  6. PROCHLORPERAZINE [Concomitant]
     Indication: PROPHYLAXIS
     Dosage: 15 MILLIGRAM
     Route: 048
     Dates: start: 20100919, end: 20110112
  7. FLIVAS [Concomitant]
     Dosage: 50 MILLIGRAM
     Route: 048
     Dates: start: 20101216, end: 20110316
  8. REVLIMID [Suspect]
     Dosage: 15 MILLIGRAM
     Route: 048
     Dates: start: 20101216, end: 20110105
  9. ERYTHROCIN LACTOBIONATE [Concomitant]
     Indication: CHRONIC SINUSITIS
     Dosage: 100 MILLIGRAM
     Route: 048
     Dates: start: 20100909, end: 20110316
  10. ARRESTEN [Concomitant]
     Dosage: 150 MILLIGRAM
     Route: 048
     Dates: start: 20100909, end: 20101215
  11. FAMOTIDINE [Concomitant]
     Indication: PROPHYLAXIS
     Dosage: 20 MILLIGRAM
     Route: 048
     Dates: start: 20100909, end: 20110316
  12. RIZE [Concomitant]
     Dosage: 5 MILLIGRAM
     Route: 048
     Dates: start: 20100909, end: 20101030
  13. LEPETAN [Concomitant]
     Dosage: .2 MILLIGRAM
     Route: 030
     Dates: start: 20100919, end: 20100919
  14. OXYCONTIN [Concomitant]
     Dosage: 20 MILLIGRAM
     Route: 048
     Dates: start: 20101216, end: 20110316
  15. DEXAMETHASONE [Suspect]
     Dosage: 20 MILLIGRAM
     Route: 048
     Dates: start: 20101014, end: 20101025
  16. DEXAMETHASONE [Suspect]
     Dosage: 20 MILLIGRAM
     Route: 048
     Dates: start: 20110120, end: 20110120
  17. DEXAMETHASONE [Suspect]
     Dosage: 20 MILLIGRAM
     Route: 048
     Dates: start: 20110217, end: 20110217
  18. BLADDERON [Concomitant]
     Dosage: 600 MILLIGRAM
     Route: 048
     Dates: start: 20101030, end: 20101111
  19. DIFLUCAN [Concomitant]
     Indication: PROPHYLAXIS
     Dosage: 100 MILLIGRAM
     Route: 048
     Dates: start: 20101216, end: 20110316
  20. DEXAMETHASONE [Suspect]
     Indication: MULTIPLE MYELOMA
     Dosage: 20 MILLIGRAM
     Route: 048
     Dates: start: 20100909, end: 20100925
  21. MUCODYNE [Concomitant]
     Indication: CHRONIC SINUSITIS
     Dosage: 750 MILLIGRAM
     Route: 048
     Dates: start: 20100909, end: 20110316
  22. ETODOLAC [Concomitant]
     Dosage: 400 MILLIGRAM
     Route: 048
     Dates: start: 20100907, end: 20110316
  23. OXYCONTIN [Concomitant]
     Indication: BONE PAIN
     Dosage: 10 MILLIGRAM
     Route: 048
     Dates: start: 20100919, end: 20101209
  24. MAGNESIUM OXIDE [Concomitant]
     Dosage: 1.5 GRAM
     Route: 048
     Dates: start: 20100919, end: 20110316
  25. ZOMETA [Concomitant]
     Dosage: 4 MILLIGRAM
     Route: 041
     Dates: start: 20101229, end: 20101229
  26. ZOMETA [Concomitant]
     Dosage: 4 MILLIGRAM
     Route: 041
     Dates: start: 20110216, end: 20110216
  27. DEXAMETHASONE [Suspect]
     Dosage: 20 MILLIGRAM
     Route: 048
     Dates: start: 20101216, end: 20101216
  28. METHYCOBAL [Concomitant]
     Dosage: 1.5 MILLIGRAM
     Route: 048
     Dates: start: 20091001, end: 20101201
  29. ZOMETA [Concomitant]
     Indication: MULTIPLE MYELOMA
     Dosage: 4 MILLIGRAM
     Route: 041
     Dates: start: 20101013, end: 20101013
  30. REVLIMID [Suspect]
     Dosage: 15 MILLIGRAM
     Route: 048
     Dates: start: 20101014, end: 20101103
  31. REVLIMID [Suspect]
     Dosage: 15 MILLIGRAM
     Route: 048
     Dates: start: 20101118, end: 20101208
  32. DEXAMETHASONE [Suspect]
     Dosage: 20 MILLIGRAM
     Route: 048
     Dates: start: 20101118, end: 20101129
  33. ASPIRIN [Concomitant]
     Indication: PROPHYLAXIS
     Dosage: 100 MILLIGRAM
     Route: 048
     Dates: start: 20100909, end: 20110316
  34. LEFTOSE [Concomitant]
     Dosage: 1 GRAM
     Route: 048
     Dates: start: 20100909, end: 20101104
  35. PURSENNID [Concomitant]
     Dosage: 24 MILLIGRAM
     Route: 048
     Dates: start: 20100909, end: 20110316
  36. ZOLPIDEM [Concomitant]
     Dosage: 10 MILLIGRAM
     Route: 048
     Dates: start: 20100909, end: 20101030
  37. REVLIMID [Suspect]
     Dosage: 15 MILLIGRAM
     Route: 048
     Dates: start: 20100922, end: 20101006
  38. REVLIMID [Suspect]
     Dosage: 15 MILLIGRAM
     Route: 048
     Dates: start: 20110120, end: 20110209
  39. REVLIMID [Suspect]
     Dosage: 15 MILLIGRAM
     Route: 048
     Dates: start: 20110217, end: 20110309
  40. MARZULENE-S [Concomitant]
     Indication: PROPHYLAXIS
     Dosage: 1.34 GRAM
     Route: 048
     Dates: start: 20100908, end: 20101201
  41. ZOLPIDEM [Concomitant]
     Dosage: 5 MILLIGRAM
     Route: 048
     Dates: start: 20101216, end: 20110119
  42. ZOMETA [Concomitant]
     Dosage: 4 MILLIGRAM
     Route: 041
     Dates: start: 20110126, end: 20110126

REACTIONS (8)
  - DYSAESTHESIA [None]
  - ANXIETY [None]
  - MYALGIA [None]
  - BONE PAIN [None]
  - NEUTROPENIA [None]
  - THROMBOCYTOPENIA [None]
  - ANAEMIA [None]
  - MALAISE [None]
